FAERS Safety Report 8085798-6 (Version None)
Quarter: 2012Q1

REPORT INFORMATION
  Report Type: 
  Country: None (occurrence: None)
  Receive Date: 20120128
  Receipt Date: 20110608
  Transmission Date: 20120608
  Serious: No
  Sender: FDA-Public Use
  Company Number: US-ABBOTT-11P-163-0731221-00

PATIENT
  Sex: Female
  Weight: 68.1 kg

DRUGS (3)
  1. HUMIRA [Suspect]
     Indication: PSORIASIS
     Dates: start: 20090401, end: 20110401
  2. CLARITIN [Concomitant]
     Indication: SEASONAL ALLERGY
  3. HUMIRA [Suspect]
     Dates: start: 20110519

REACTIONS (5)
  - HEADACHE [None]
  - UPPER-AIRWAY COUGH SYNDROME [None]
  - SINUSITIS [None]
  - COUGH [None]
  - OROPHARYNGEAL PAIN [None]
